FAERS Safety Report 24397429 (Version 1)
Quarter: 2024Q4

REPORT INFORMATION
  Report Type: Spontaneous
  Country: US (occurrence: None)
  Receive Date: 20241004
  Receipt Date: 20241004
  Transmission Date: 20250114
  Serious: Yes (Hospitalization)
  Sender: Public
  Company Number: None

PATIENT
  Age: 69 Year
  Sex: Female

DRUGS (3)
  1. SILDENAFIL CITRATE [Suspect]
     Active Substance: SILDENAFIL CITRATE
     Indication: Pulmonary arterial hypertension
     Dosage: FREQUENCY : TWICE A DAY;?
     Route: 048
     Dates: start: 202407
  2. C-TREPROSTINIL 0.12MG/ML [Concomitant]
  3. OPSUMIT [Concomitant]

REACTIONS (1)
  - Pneumonia [None]

NARRATIVE: CASE EVENT DATE: 20241002
